FAERS Safety Report 8213198-4 (Version None)
Quarter: 2012Q1

REPORT INFORMATION
  Report Type: 
  Country: None (occurrence: None)
  Receive Date: 20120315
  Receipt Date: 20120309
  Transmission Date: 20120608
  Serious: Yes (Congenital Anomaly)
  Sender: FDA-Public Use
  Company Number: US-FRI-1000028973

PATIENT
  Sex: Female

DRUGS (1)
  1. LEXAPRO [Suspect]
     Route: 064
     Dates: start: 20110101, end: 20110101

REACTIONS (1)
  - CRANIOSYNOSTOSIS [None]
